FAERS Safety Report 4413511-X (Version None)
Quarter: 2004Q2

REPORT INFORMATION
  Report Type: 
  Country: None (occurrence: None)
  Receive Date: 20040630
  Receipt Date: 20040326
  Transmission Date: 20050107
  Serious: No
  Sender: FDA-Public Use
  Company Number: 04P-163-0254810-00

PATIENT
  Age: 41 Year
  Sex: Female
  Weight: 124.7392 kg

DRUGS (12)
  1. HUMIRA [Suspect]
     Indication: RHEUMATOID ARTHRITIS
     Dosage: 40 MG, 1 IN 2 WK, SUBCUTANEOUS
     Route: 058
     Dates: start: 20040201
  2. OXAPROZIN [Concomitant]
  3. CEFADROXIL [Concomitant]
  4. SINGULAIR [Concomitant]
  5. SULSAZINE ER [Concomitant]
  6. TIZANIDINE HYDROCHLORIDE [Concomitant]
  7. HYDROCHLOROTHIAZIDE [Concomitant]
  8. FLUTICASONE PROPIONATE [Concomitant]
  9. ALBUTEROL SULFATE [Concomitant]
  10. FOLIC ACID [Concomitant]
  11. METHOTREXATE [Concomitant]
  12. RIZATRIPTAN BENZOATE [Concomitant]

REACTIONS (5)
  - INJECTION SITE MASS [None]
  - INJECTION SITE PRURITUS [None]
  - INJECTION SITE STINGING [None]
  - INJECTION SITE SWELLING [None]
  - INJECTION SITE URTICARIA [None]
